FAERS Safety Report 10048830 (Version 2)
Quarter: 2014Q2

REPORT INFORMATION
  Report Type: Spontaneous
  Country: FR (occurrence: FR)
  Receive Date: 20140331
  Receipt Date: 20140409
  Transmission Date: 20141212
  Serious: Yes (Other)
  Sender: FDA-Public Use
  Company Number: FR-US-EMD SERONO, INC.-7277661

PATIENT
  Age: 34 Year
  Sex: Female

DRUGS (1)
  1. GONAL-F [Suspect]
     Indication: ARTIFICIAL INSEMINATION BY PARTNER
     Dosage: 450 IU/0.75 ML (33 MICROGRAMS/0.75 ML) SOLUTION FOR INJECTION IN A PRE-FILLED INJECTOR PEN
     Route: 058
     Dates: start: 20121004, end: 20121008

REACTIONS (1)
  - Rash generalised [Recovered/Resolved]
